FAERS Safety Report 5472451-8 (Version None)
Quarter: 2007Q3

REPORT INFORMATION
  Report Type: 
  Country: None (occurrence: None)
  Receive Date: 20070926
  Receipt Date: 20070914
  Transmission Date: 20080115
  Serious: Yes (Death, Hospitalization)
  Sender: FDA-Public Use
  Company Number: DSJ-2007-04516

PATIENT
  Age: 75 Year
  Sex: Female
  Weight: 60 kg

DRUGS (3)
  1. OLMESARTAN MEDOXOMIL [Suspect]
     Indication: HYPERTENSION
     Dosage: 20 MG (20 MG, 1 IN 1 D), PER ORAL
     Route: 048
     Dates: start: 20060328, end: 20070702
  2. ZENASPIRIN (TABLET) [Suspect]
     Indication: THROMBOTIC STROKE
     Dosage: 100 MG (100 MG, 1 IN 1 D), PER ORAL
     Route: 048
     Dates: start: 20060328, end: 20070702
  3. AMLODIN (AMLODIPINE BESILATE) (TABLET) (AMLODIPINE BESILATE) [Suspect]
     Indication: HYPERTENSION
     Dosage: 2.5 MG (2.5 MG, 1 IN 1 D), PER ORAL
     Route: 048
     Dates: start: 20060328, end: 20070702

REACTIONS (5)
  - AUTOIMMUNE HEPATITIS [None]
  - BLOOD CHOLESTEROL INCREASED [None]
  - BLOOD GLUCOSE DECREASED [None]
  - HEPATITIS ACUTE [None]
  - RED BLOOD CELL COUNT DECREASED [None]
